FAERS Safety Report 24529795 (Version 2)
Quarter: 2024Q4

REPORT INFORMATION
  Report Type: Spontaneous
  Country: US (occurrence: US)
  Receive Date: 20241021
  Receipt Date: 20241023
  Transmission Date: 20250114
  Serious: Yes (Other)
  Sender: MERCK
  Company Number: US-009507513-2410USA004682

PATIENT
  Age: 65 Year
  Sex: Female

DRUGS (2)
  1. JANUMET [Suspect]
     Active Substance: METFORMIN HYDROCHLORIDE\SITAGLIPTIN PHOSPHATE
     Dosage: TAKE 2 TABLETS BY MOUTH DAILY
     Route: 048
  2. METFORMIN [Suspect]
     Active Substance: METFORMIN HYDROCHLORIDE

REACTIONS (7)
  - Loss of consciousness [Unknown]
  - Dizziness [Unknown]
  - Hypertension [Unknown]
  - Blood glucose increased [Unknown]
  - Product distribution issue [Unknown]
  - Product dose omission issue [Unknown]
  - Product use issue [Unknown]

NARRATIVE: CASE EVENT DATE: 20240913
